FAERS Safety Report 4514532-9 (Version None)
Quarter: 2004Q4

REPORT INFORMATION
  Report Type: 
  Country: None (occurrence: None)
  Receive Date: 20041126
  Receipt Date: 20041119
  Transmission Date: 20050328
  Serious: Yes (Hospitalization)
  Sender: FDA-Public Use
  Company Number: STA-AE-04-MTX-590

PATIENT
  Age: 67 Year
  Sex: Female

DRUGS (2)
  1. METHOTREXATE [Suspect]
     Indication: RHEUMATOID ARTHRITIS
     Dosage: 5 MG 1 X PER 1 WK, ORAL
     Route: 048
     Dates: start: 20020402, end: 20040907
  2. BETAMETHASONE [Suspect]
     Dosage: 0.5 MG/DAY

REACTIONS (3)
  - LYMPHOCYTE COUNT DECREASED [None]
  - PNEUMOCYSTIS CARINII PNEUMONIA [None]
  - RESPIRATORY DISTRESS [None]
